FAERS Safety Report 7021602-2 (Version None)
Quarter: 2010Q3

REPORT INFORMATION
  Report Type: 
  Country: None (occurrence: None)
  Receive Date: 20100928
  Receipt Date: 20100916
  Transmission Date: 20110219
  Serious: Yes (Disabling)
  Sender: FDA-Public Use
  Company Number: 2010AP002016

PATIENT
  Sex: Male

DRUGS (8)
  1. ACYCLOVIR [Suspect]
     Dosage: 400 MG; TID PO
     Route: 048
  2. AMLODIPINE BESYLATE [Suspect]
     Dosage: 10 MG; QD PO
     Route: 048
  3. LOSARTAN POTASSIUM [Suspect]
     Dosage: 50 MG; QD PO
     Route: 048
  4. RANITIDINE HYDROCHLORIDE [Suspect]
     Dosage: 150 MG; BID PO
     Route: 048
  5. CEPHALEXIN [Suspect]
     Dosage: 250 MG; BID PO
     Route: 048
  6. BACTRIM [Suspect]
     Dosage: 480 MG; PO
     Route: 048
  7. MIRTAZAPINE [Suspect]
     Dosage: 45 MG; QD PO
     Route: 048
  8. FOLIC ACID [Concomitant]

REACTIONS (4)
  - ANAEMIA [None]
  - ARTHRALGIA [None]
  - DISABILITY [None]
  - MYALGIA [None]
